FAERS Safety Report 13052564 (Version 1)
Quarter: 2016Q4

REPORT INFORMATION
  Report Type: Spontaneous
  Country: US (occurrence: US)
  Receive Date: 20161221
  Receipt Date: 20161221
  Transmission Date: 20170207
  Serious: No
  Sender: FDA-Public Use
  Company Number: US-ALLERGAN-1000082138

PATIENT
  Age: 54 Year
  Sex: Male

DRUGS (4)
  1. BYSTOLIC [Suspect]
     Active Substance: NEBIVOLOL HYDROCHLORIDE
     Dosage: 5 MG, BID
     Route: 048
     Dates: start: 20160111, end: 20160111
  2. BYSTOLIC [Suspect]
     Active Substance: NEBIVOLOL HYDROCHLORIDE
     Dosage: 10 MG, QD
     Route: 048
     Dates: start: 2015, end: 2016
  3. BYSTOLIC [Suspect]
     Active Substance: NEBIVOLOL HYDROCHLORIDE
     Indication: HYPERTENSION
     Dosage: 5 MG, QD
     Route: 048
     Dates: start: 2015, end: 2015
  4. BYSTOLIC [Suspect]
     Active Substance: NEBIVOLOL HYDROCHLORIDE
     Dosage: 10 MG, QD
     Route: 048
     Dates: start: 20160112

REACTIONS (3)
  - Off label use [Recovered/Resolved]
  - Intentional product misuse [Not Recovered/Not Resolved]
  - Hypertension [Recovered/Resolved]

NARRATIVE: CASE EVENT DATE: 20160111
